FAERS Safety Report 5808042-6 (Version None)
Quarter: 2008Q3

REPORT INFORMATION
  Report Type: 
  Country: None (occurrence: None)
  Receive Date: 20080711
  Receipt Date: 20080701
  Transmission Date: 20090109
  Serious: Yes (Other)
  Sender: FDA-Public Use
  Company Number: PL-PFIZER INC-2008055132

PATIENT
  Sex: Male
  Weight: 33 kg

DRUGS (3)
  1. LINCOCIN [Suspect]
     Dosage: DAILY DOSE:600MG
     Route: 030
     Dates: start: 20080605, end: 20080608
  2. VIRLIX [Concomitant]
     Route: 048
  3. ACETAMINOPHEN [Concomitant]
     Route: 048

REACTIONS (1)
  - INFLAMMATION [None]
